FAERS Safety Report 4975610-3 (Version None)
Quarter: 2006Q2

REPORT INFORMATION
  Report Type: 
  Country: None (occurrence: None)
  Receive Date: 20060411
  Receipt Date: 20060118
  Transmission Date: 20061013
  Serious: Yes (Life-Threatening)
  Sender: FDA-Public Use
  Company Number: 2006-137413-NL

PATIENT
  Age: 17 Year
  Sex: Female

DRUGS (5)
  1. VECURONIUM BROMIDE [Suspect]
     Indication: GENERAL ANAESTHESIA
     Dosage: 5 MG ONCE INTRAVENOUS (NOS)
     Route: 042
     Dates: start: 20060113, end: 20060113
  2. MIDAZOLAM HYDROCHLORIDE [Concomitant]
  3. KETAMINE HCL [Concomitant]
  4. FENTANYL CITRATE [Concomitant]
  5. SEVOFLURANE [Concomitant]

REACTIONS (3)
  - BRONCHOSPASM [None]
  - HYPOVENTILATION [None]
  - PROCEDURAL COMPLICATION [None]
